FAERS Safety Report 9833073 (Version 3)
Quarter: 2014Q2

REPORT INFORMATION
  Report Type: Spontaneous
  Country: US (occurrence: US)
  Receive Date: 20140121
  Receipt Date: 20140626
  Transmission Date: 20141212
  Serious: No
  Sender: FDA-Public Use
  Company Number: US-009507513-1401USA006309

PATIENT
  Sex: Male

DRUGS (1)
  1. PROPECIA [Suspect]
     Indication: ALOPECIA
     Dosage: 1 MG, QD
     Route: 048
     Dates: start: 2005, end: 201208

REACTIONS (14)
  - Sexual dysfunction [Not Recovered/Not Resolved]
  - Libido decreased [Not Recovered/Not Resolved]
  - Ejaculation disorder [Not Recovered/Not Resolved]
  - Cognitive disorder [Not Recovered/Not Resolved]
  - Blood testosterone decreased [Unknown]
  - Asthenia [Unknown]
  - Anxiety [Not Recovered/Not Resolved]
  - Oral surgery [Unknown]
  - Keratomileusis [Unknown]
  - Eye disorder [Unknown]
  - Oral disorder [Unknown]
  - Hypogonadism [Unknown]
  - Nocturia [Unknown]
  - Weight decreased [Unknown]
